FAERS Safety Report 8392219-2 (Version None)
Quarter: 2012Q2

REPORT INFORMATION
  Report Type: 
  Country: None (occurrence: None)
  Receive Date: 20120529
  Receipt Date: 20120522
  Transmission Date: 20120825
  Serious: Yes (Hospitalization)
  Sender: FDA-Public Use
  Company Number: FR-PFIZER INC-2012123228

PATIENT
  Age: 85 Year
  Sex: Female

DRUGS (15)
  1. PREDNISONE TAB [Concomitant]
     Dosage: 5 MG, 1X/DAY
     Route: 048
  2. PROTELOS [Concomitant]
     Dosage: 2 MG, 1X/DAY
     Route: 048
  3. OMEPRAZOLE [Suspect]
     Dosage: UNK
     Route: 048
     Dates: end: 20110801
  4. ACETAMINOPHEN [Concomitant]
     Dosage: 6 DF, 1X/DAY
     Route: 048
  5. ZOLPIDEM TARTRATE [Concomitant]
     Dosage: 5 MG, 1X/DAY
     Route: 048
  6. CACIT D3 [Concomitant]
     Dosage: 500 MG/440 UI, 2 DOSAGE FORMS ONCE DAILY
     Route: 048
  7. IRBESARTAN + HYDROCHLOROTHIAZIDE [Suspect]
     Dosage: UNK
     Route: 048
     Dates: end: 20110801
  8. ASPIRIN [Concomitant]
     Dosage: 1 DF, 1X/DAY
  9. OXAZEPAM [Concomitant]
     Dosage: 10 MG, 1X/DAY
     Route: 048
  10. EFFEXOR XR [Suspect]
     Indication: DEPRESSION
     Dosage: 37.5 MG, UNK
     Route: 048
     Dates: start: 20080101, end: 20110801
  11. BISOPROLOL FUMARATE [Concomitant]
     Dosage: 1 DF, 1X/DAY
     Route: 048
  12. EZETIMIBE [Concomitant]
     Dosage: 10 MG/20 MG, 1 DOSAGE FORM ONCE DAILY
     Route: 048
  13. NUTROF [Concomitant]
     Dosage: 2 DF, 1X/DAY
     Route: 048
  14. METHOTREXATE [Concomitant]
     Dosage: UNK DF, 1X/DAY
     Route: 048
     Dates: start: 20110101
  15. LACTULOSE [Suspect]
     Dosage: 2 DF, 1X/DAY

REACTIONS (3)
  - HYPONATRAEMIA [None]
  - DISORIENTATION [None]
  - ASTHENIA [None]
